FAERS Safety Report 11951202 (Version 1)
Quarter: 2016Q1

REPORT INFORMATION
  Report Type: Spontaneous
  Country: US (occurrence: US)
  Receive Date: 20160126
  Receipt Date: 20160126
  Transmission Date: 20160526
  Serious: Yes (Other)
  Sender: FDA-Public Use
  Company Number: US-ASTELLAS-2016US002633

PATIENT
  Age: 6 Decade
  Sex: Female

DRUGS (1)
  1. LEXISCAN [Suspect]
     Active Substance: REGADENOSON
     Indication: PRODUCT USED FOR UNKNOWN INDICATION
     Dosage: UNK UNK, UNKNOWN FREQ.
     Route: 065
     Dates: start: 201601, end: 201601

REACTIONS (3)
  - Unresponsive to stimuli [Unknown]
  - Posture abnormal [Unknown]
  - Aphasia [Unknown]

NARRATIVE: CASE EVENT DATE: 201601
